FAERS Safety Report 7393930-2 (Version None)
Quarter: 2011Q2

REPORT INFORMATION
  Report Type: 
  Country: None (occurrence: None)
  Receive Date: 20110405
  Receipt Date: 20110324
  Transmission Date: 20111010
  Serious: Yes (Other)
  Sender: FDA-Public Use
  Company Number: US-JNJFOC-20110303613

PATIENT
  Sex: Male

DRUGS (3)
  1. DURAGESIC-50 [Suspect]
     Indication: PRODUCT USED FOR UNKNOWN INDICATION
     Route: 062
  2. FENTANYL-100 [Suspect]
     Indication: PRODUCT USED FOR UNKNOWN INDICATION
     Route: 062
  3. DURAGESIC-50 [Suspect]
     Indication: MUSCULOSKELETAL PAIN
     Route: 062

REACTIONS (8)
  - DEAFNESS [None]
  - PRODUCT QUALITY ISSUE [None]
  - NEUROPATHY PERIPHERAL [None]
  - DEAFNESS UNILATERAL [None]
  - APPLICATION SITE VESICLES [None]
  - WITHDRAWAL SYNDROME [None]
  - WRONG TECHNIQUE IN DRUG USAGE PROCESS [None]
  - INAPPROPRIATE SCHEDULE OF DRUG ADMINISTRATION [None]
